FAERS Safety Report 4626546-9 (Version None)
Quarter: 2005Q1

REPORT INFORMATION
  Report Type: 
  Country: None (occurrence: None)
  Receive Date: 20050330
  Receipt Date: 20050316
  Transmission Date: 20050727
  Serious: Yes (Death)
  Sender: FDA-Public Use
  Company Number: USA050392308

PATIENT
  Sex: Female

DRUGS (3)
  1. ALIMTA [Suspect]
     Dates: start: 20050301
  2. CORTICOSTEROID NOS [Concomitant]
  3. PROCRIT (EPOETIN ALFA) [Concomitant]

REACTIONS (2)
  - ACUTE MYOCARDIAL INFARCTION [None]
  - PALPITATIONS [None]
